FAERS Safety Report 24466469 (Version 1)
Quarter: 2024Q4

REPORT INFORMATION
  Report Type: Report from Study
  Country: US (occurrence: US)
  Receive Date: 20241018
  Receipt Date: 20241018
  Transmission Date: 20250114
  Serious: Yes (Other)
  Sender: ABBVIE
  Company Number: US-ABBVIE-5962150

PATIENT
  Sex: Male

DRUGS (1)
  1. SKYRIZI [Suspect]
     Active Substance: RISANKIZUMAB-RZAA
     Indication: Psoriasis
     Route: 058
     Dates: start: 20221213

REACTIONS (4)
  - Knee arthroplasty [Recovering/Resolving]
  - Ligament disorder [Unknown]
  - Device dislocation [Unknown]
  - Procedural complication [Unknown]

NARRATIVE: CASE EVENT DATE: 20240101
